FAERS Safety Report 20414738 (Version 1)
Quarter: 2022Q1

REPORT INFORMATION
  Report Type: Spontaneous
  Country: US (occurrence: US)
  Receive Date: 20220202
  Receipt Date: 20220202
  Transmission Date: 20220423
  Serious: No
  Sender: FDA-Public Use
  Company Number: US-GLENMARK PHARMACEUTICALS-2021GMK068009

PATIENT

DRUGS (3)
  1. TACROLIMUS [Suspect]
     Active Substance: TACROLIMUS
     Indication: Lichen sclerosus
     Dosage: UNK, OD (AT NIGHT)
     Route: 061
     Dates: start: 20210112
  2. ESTRADIOL [Concomitant]
     Active Substance: ESTRADIOL
     Indication: Vaginal infection
     Dosage: UNK (TWICE A WEEK ON MONDAY AND THURSDAY)
     Route: 067
     Dates: start: 20210913
  3. CEPHALEXIN [Concomitant]
     Active Substance: CEPHALEXIN
     Indication: Urinary tract infection
     Dosage: 500 MILLIGRAM, BID
     Route: 065

REACTIONS (2)
  - Drug effective for unapproved indication [Unknown]
  - Product container issue [Unknown]

NARRATIVE: CASE EVENT DATE: 20210101
